FAERS Safety Report 16078160 (Version 2)
Quarter: 2019Q4

REPORT INFORMATION
  Report Type: Spontaneous
  Country: MY (occurrence: MY)
  Receive Date: 20190315
  Receipt Date: 20191217
  Transmission Date: 20200122
  Serious: Yes (Hospitalization, Other)
  Sender: FDA-Public Use
  Company Number: MY-AMGEN-MYSSP2019038970

PATIENT
  Age: 79 Year
  Sex: Male

DRUGS (5)
  1. XGEVA [Suspect]
     Active Substance: DENOSUMAB
     Dosage: 120 MILLIGRAM, Q6WK
     Route: 058
     Dates: start: 201607
  2. GOSERELIN [Concomitant]
     Active Substance: GOSERELIN
     Indication: PROSTATE CANCER
     Dosage: UNK UNK, Q3MO
  3. XGEVA [Suspect]
     Active Substance: DENOSUMAB
     Indication: PROSTATE CANCER
     Dosage: 120 MILLIGRAM, Q6WK
     Route: 058
     Dates: start: 2016
  4. XGEVA [Suspect]
     Active Substance: DENOSUMAB
     Dosage: 120 MILLIGRAM, Q6WK
     Route: 058
     Dates: start: 201610
  5. ABIRATERONE. [Concomitant]
     Active Substance: ABIRATERONE ACETATE
     Indication: PROSTATE CANCER

REACTIONS (4)
  - Pneumonia [Unknown]
  - Lethargy [Unknown]
  - Off label use [Unknown]
  - Myalgia [Unknown]

NARRATIVE: CASE EVENT DATE: 201606
